FAERS Safety Report 15552034 (Version 1)
Quarter: 2018Q4

REPORT INFORMATION
  Report Type: Report from Study
  Country: IT (occurrence: IT)
  Receive Date: 20181025
  Receipt Date: 20181025
  Transmission Date: 20190205
  Serious: Yes (Other)
  Sender: FDA-Public Use
  Company Number: IT-MYLANLABS-2018M1080125

PATIENT
  Age: 68 Year
  Sex: Female

DRUGS (2)
  1. CAPECITABINA MYLAN 500 MG COMPRESSE RIVESTITE CON FILM [Suspect]
     Active Substance: CAPECITABINE
     Indication: PANCREATIC CARCINOMA
     Dosage: 2500 MG, QD
     Route: 048
     Dates: start: 20180417
  2. OXALIPLATINO [Concomitant]
     Active Substance: OXALIPLATIN
     Indication: PANCREATIC CARCINOMA
     Dosage: 170 MG, UNK
     Route: 042

REACTIONS (2)
  - Rash [Not Recovered/Not Resolved]
  - Hyperaemia [Not Recovered/Not Resolved]

NARRATIVE: CASE EVENT DATE: 20180521
